FAERS Safety Report 9768391 (Version 2)
Quarter: 2014Q1

REPORT INFORMATION
  Report Type: Spontaneous
  Country: US (occurrence: US)
  Receive Date: 20131217
  Receipt Date: 20140210
  Transmission Date: 20141002
  Serious: Yes (Other)
  Sender: FDA-Public Use
  Company Number: US-PFIZER INC-2013355422

PATIENT
  Age: 51 Year
  Sex: Female

DRUGS (4)
  1. AZITHROMYCIN [Suspect]
     Dosage: UNK
  2. SUMATRIPTAN SUCCINATE [Suspect]
     Indication: IRRITABLE BOWEL SYNDROME
     Dosage: 100 MG, UNK
     Route: 048
     Dates: start: 199303
  3. SUMATRIPTAN SUCCINATE [Suspect]
     Indication: MIGRAINE
  4. IMITREX [Suspect]
     Indication: MIGRAINE
     Dosage: 6 MG, UNK
     Route: 058
     Dates: start: 199303

REACTIONS (9)
  - Kidney infection [Unknown]
  - Neoplasm malignant [Unknown]
  - Road traffic accident [Unknown]
  - Sinusitis [Unknown]
  - Irritable bowel syndrome [Unknown]
  - Vomiting [Unknown]
  - Headache [Unknown]
  - Migraine with aura [Unknown]
  - Abdominal migraine [Unknown]
